FAERS Safety Report 5406007-X (Version None)
Quarter: 2007Q3

REPORT INFORMATION
  Report Type: 
  Country: None (occurrence: None)
  Receive Date: 20070802
  Receipt Date: 20070723
  Transmission Date: 20080115
  Serious: Yes (Hospitalization)
  Sender: FDA-Public Use
  Company Number: TCI2006A00212

PATIENT
  Age: 75 Year
  Sex: Female

DRUGS (6)
  1. ACTOS [Suspect]
     Indication: TYPE 2 DIABETES MELLITUS
     Dosage: 15 MG (15 MG, 1-2); 15 MG (15 MG, 1 IN 1 D); 30 MG (30 MG, 1 IN 1 D) : PER ORAL
     Route: 048
     Dates: start: 20030117, end: 20051101
  2. ACTOS [Suspect]
     Indication: TYPE 2 DIABETES MELLITUS
     Dosage: 15 MG (15 MG, 1-2); 15 MG (15 MG, 1 IN 1 D); 30 MG (30 MG, 1 IN 1 D) : PER ORAL
     Route: 048
     Dates: start: 20051102, end: 20060112
  3. (MYDRIATICS AND PREPARATION) [Suspect]
     Indication: FUNDOSCOPY
     Dates: start: 20060112, end: 20060112
  4. NORVASC [Concomitant]
  5. FERROMIA (FERROUS CITRATE) [Concomitant]
  6. LOCHOL (FLUVASTATIN SODIUM) [Concomitant]

REACTIONS (7)
  - FALL [None]
  - MOUTH INJURY [None]
  - OPEN WOUND [None]
  - PATELLA FRACTURE [None]
  - RADIUS FRACTURE [None]
  - ULNA FRACTURE [None]
  - WRIST FRACTURE [None]
